FAERS Safety Report 19884627 (Version 3)
Quarter: 2021Q4

REPORT INFORMATION
  Report Type: Report from Study
  Country: CO (occurrence: CO)
  Receive Date: 20210927
  Receipt Date: 20211124
  Transmission Date: 20220303
  Serious: Yes (Other)
  Sender: FDA-Public Use
  Company Number: CO-SA-SAC20210922000766

PATIENT
  Age: 57 Year
  Sex: Female

DRUGS (2)
  1. TERIFLUNOMIDE [Suspect]
     Active Substance: TERIFLUNOMIDE
     Indication: Multiple sclerosis
     Dosage: 14 MG, QD
     Route: 048
     Dates: start: 20190403
  2. GABAPENTIN [Concomitant]
     Active Substance: GABAPENTIN
     Dosage: 400 MG, BID

REACTIONS (4)
  - Deafness [Recovered/Resolved]
  - Ear pain [Recovered/Resolved]
  - Tinnitus [Recovered/Resolved]
  - Ear disorder [Recovering/Resolving]

NARRATIVE: CASE EVENT DATE: 20210901
